FAERS Safety Report 12232640 (Version 1)
Quarter: 2016Q2

REPORT INFORMATION
  Report Type: Spontaneous
  Country: US (occurrence: US)
  Receive Date: 20160401
  Receipt Date: 20160401
  Transmission Date: 20160815
  Serious: Yes (Other)
  Sender: FDA-Public Use
  Company Number: US-BAUSCH-BL-2016-007139

PATIENT
  Age: 71 Year
  Sex: Female

DRUGS (4)
  1. TIMOPTIC [Suspect]
     Active Substance: TIMOLOL MALEATE
     Route: 065
     Dates: end: 201603
  2. XALATAN [Suspect]
     Active Substance: LATANOPROST
     Indication: PRODUCT USED FOR UNKNOWN INDICATION
     Route: 065
  3. TIMOPTIC [Suspect]
     Active Substance: TIMOLOL MALEATE
     Indication: PRODUCT USED FOR UNKNOWN INDICATION
     Route: 065
     Dates: start: 201511
  4. METFORMIN [Suspect]
     Active Substance: METFORMIN HYDROCHLORIDE
     Indication: PRODUCT USED FOR UNKNOWN INDICATION
     Route: 065

REACTIONS (7)
  - Vision blurred [Recovered/Resolved]
  - Unevaluable event [Unknown]
  - Adverse drug reaction [Unknown]
  - Eye pain [Recovered/Resolved]
  - Eye discharge [Recovered/Resolved]
  - Rash [Unknown]
  - Drug ineffective [Unknown]

NARRATIVE: CASE EVENT DATE: 201603
